FAERS Safety Report 25267895 (Version 1)
Quarter: 2025Q2

REPORT INFORMATION
  Report Type: Spontaneous
  Country: US (occurrence: US)
  Receive Date: 20250505
  Receipt Date: 20250505
  Transmission Date: 20250716
  Serious: No
  Sender: ELI LILLY AND COMPANY
  Company Number: US-ELI_LILLY_AND_COMPANY-US202505001427

PATIENT
  Age: 51 Year
  Sex: Male

DRUGS (5)
  1. ZEPBOUND [Suspect]
     Active Substance: TIRZEPATIDE
     Indication: Weight control
     Route: 058
     Dates: start: 20240811
  2. ZEPBOUND [Suspect]
     Active Substance: TIRZEPATIDE
     Indication: Weight control
     Route: 058
     Dates: start: 20240811
  3. ZEPBOUND [Suspect]
     Active Substance: TIRZEPATIDE
     Indication: Weight control
     Route: 058
     Dates: start: 20240811
  4. ZEPBOUND [Suspect]
     Active Substance: TIRZEPATIDE
     Indication: Weight control
     Route: 058
     Dates: start: 20240811
  5. METOPROLOL [Concomitant]
     Active Substance: METOPROLOL
     Indication: Coronary artery disease

REACTIONS (4)
  - Incorrect dose administered [Unknown]
  - Injection site urticaria [Unknown]
  - Injection site discolouration [Unknown]
  - Injection site pain [Unknown]

NARRATIVE: CASE EVENT DATE: 20250427
